FAERS Safety Report 17154101 (Version 3)
Quarter: 2021Q2

REPORT INFORMATION
  Report Type: Spontaneous
  Country: DE (occurrence: DE)
  Receive Date: 20191213
  Receipt Date: 20210623
  Transmission Date: 20210716
  Serious: Yes (Other)
  Sender: FDA-Public Use
  Company Number: NVSC2019DE061935

PATIENT
  Age: 59 Year
  Sex: Female

DRUGS (3)
  1. VARGATEF [Suspect]
     Active Substance: NINTEDANIB
     Indication: NON-SMALL CELL LUNG CANCER
     Dosage: 200 MG, QD
     Route: 065
     Dates: start: 20171108, end: 201809
  2. DOCETAXEL. [Suspect]
     Active Substance: DOCETAXEL
     Indication: PRODUCT USED FOR UNKNOWN INDICATION
     Dosage: UNK
     Route: 065
     Dates: start: 20171108, end: 20180905
  3. VARGATEF [Suspect]
     Active Substance: NINTEDANIB
     Dosage: UNK
     Route: 065
     Dates: end: 201906

REACTIONS (6)
  - Hypoaesthesia [Unknown]
  - Decreased appetite [Unknown]
  - Stomatitis [Unknown]
  - Fatigue [Unknown]
  - Malignant neoplasm progression [Unknown]
  - Diarrhoea [Unknown]

NARRATIVE: CASE EVENT DATE: 20200228
